FAERS Safety Report 5039355-6 (Version None)
Quarter: 2006Q2

REPORT INFORMATION
  Report Type: 
  Country: None (occurrence: None)
  Receive Date: 20060623
  Receipt Date: 20060609
  Transmission Date: 20061013
  Serious: Yes (Other)
  Sender: FDA-Public Use
  Company Number: 2006074156

PATIENT
  Sex: Female
  Weight: 58.514 kg

DRUGS (3)
  1. BEXTRA [Suspect]
     Indication: OSTEOARTHRITIS
     Dosage: 40 MG (20 MG, 2 IN 1 D),
     Dates: end: 20050101
  2. RISPERDAL [Concomitant]
  3. CLONAZEPAM [Concomitant]

REACTIONS (14)
  - BIOPSY SKIN ABNORMAL [None]
  - EAR DISORDER [None]
  - GASTRIC DISORDER [None]
  - ILL-DEFINED DISORDER [None]
  - MORPHOEA [None]
  - NASAL DISORDER [None]
  - PALATAL DISORDER [None]
  - PNEUMONIA [None]
  - PURPURA [None]
  - PYREXIA [None]
  - RASH ERYTHEMATOUS [None]
  - SINUS DISORDER [None]
  - SURGERY [None]
  - WEGENER'S GRANULOMATOSIS [None]
